FAERS Safety Report 5278632-0 (Version None)
Quarter: 2007Q1

REPORT INFORMATION
  Report Type: 
  Country: None (occurrence: None)
  Receive Date: 20070321
  Receipt Date: 20070306
  Transmission Date: 20070707
  Serious: Yes (Hospitalization, Other)
  Sender: FDA-Public Use
  Company Number: A-JP2005-10095

PATIENT
  Age: 36 Year
  Sex: Female
  Weight: 41 kg

DRUGS (12)
  1. TRACLEER [Suspect]
     Indication: PULMONARY HYPERTENSION
     Dosage: SEE IMAGE
     Dates: start: 20050623, end: 20050623
  2. TRACLEER [Suspect]
     Indication: PULMONARY HYPERTENSION
     Dosage: SEE IMAGE
     Dates: start: 20050624, end: 20050628
  3. FLOLAN [Suspect]
     Dosage: 160 MG/KG/MIN, INTRAVENOUS
     Route: 042
  4. VIAGRA [Suspect]
     Dosage: 25 MG, TID, ORAL
     Route: 048
  5. SPIRONOLACTONE [Concomitant]
  6. PIMOBENDAN (PIMOBENDAN) [Concomitant]
  7. RANITIDINE [Concomitant]
  8. TORSEMIDE [Concomitant]
  9. MOSAPRIDE [Concomitant]
  10. CIDEFERRON [Concomitant]
  11. CEFCAPENE PIVOXIL HYDROCHLORIDE (CEFCAPENE PIVOXIL HYDROCHLORIDE) [Concomitant]
  12. OXYGEN (OXYGEN) [Concomitant]

REACTIONS (13)
  - ALANINE AMINOTRANSFERASE INCREASED [None]
  - ANAEMIA [None]
  - ASPARTATE AMINOTRANSFERASE INCREASED [None]
  - CATHETER SITE HAEMORRHAGE [None]
  - DRUG INTERACTION [None]
  - HAEMOGLOBIN DECREASED [None]
  - HEADACHE [None]
  - HEPATIC FUNCTION ABNORMAL [None]
  - NAUSEA [None]
  - PLATELET COUNT DECREASED [None]
  - RIGHT VENTRICULAR FAILURE [None]
  - VESSEL PUNCTURE SITE HAEMATOMA [None]
  - VOMITING [None]
